FAERS Safety Report 25920788 (Version 1)
Quarter: 2025Q4

REPORT INFORMATION
  Report Type: Spontaneous
  Country: GB (occurrence: GB)
  Receive Date: 20251014
  Receipt Date: 20251014
  Transmission Date: 20260117
  Serious: Yes (Hospitalization, Other)
  Sender: JOHNSON AND JOHNSON
  Company Number: GB-JNJFOC-20251013657

PATIENT
  Age: 12 Year
  Sex: Male

DRUGS (1)
  1. INFLIXIMAB [Suspect]
     Active Substance: INFLIXIMAB
     Indication: Crohn^s disease
     Route: 041

REACTIONS (4)
  - Respiratory failure [Unknown]
  - Oesophagobronchial fistula [Unknown]
  - Vasoplegia syndrome [Not Recovered/Not Resolved]
  - Bovine tuberculosis [Unknown]
